FAERS Safety Report 7463357-3 (Version None)
Quarter: 2011Q2

REPORT INFORMATION
  Report Type: 
  Country: None (occurrence: None)
  Receive Date: 20110506
  Receipt Date: 20110429
  Transmission Date: 20111010
  Serious: Yes (Death)
  Sender: FDA-Public Use
  Company Number: A0817600A

PATIENT
  Age: 62 Year
  Sex: Male

DRUGS (5)
  1. AVANDIA [Suspect]
     Indication: DIABETES MELLITUS
     Route: 048
     Dates: end: 20050623
  2. LUTEIN [Concomitant]
  3. INSULIN [Concomitant]
  4. GLUCOPHAGE [Concomitant]
  5. DIABETA [Concomitant]

REACTIONS (1)
  - CORONARY ARTERY DISEASE [None]
